FAERS Safety Report 4548821-9 (Version None)
Quarter: 2004Q4

REPORT INFORMATION
  Report Type: 
  Country: None (occurrence: None)
  Receive Date: 20041227
  Receipt Date: 20040901
  Transmission Date: 20050328
  Serious: No
  Sender: FDA-Public Use
  Company Number: 04P-163-0246183-00

PATIENT
  Age: 56 Year
  Sex: Male
  Weight: 86.1834 kg

DRUGS (9)
  1. HUMIRA [Suspect]
     Indication: RHEUMATOID ARTHRITIS
     Dosage: SEE IMAGE
     Route: 058
     Dates: start: 20030801, end: 20040401
  2. HUMIRA [Suspect]
     Indication: RHEUMATOID ARTHRITIS
     Dosage: SEE IMAGE
     Route: 058
     Dates: start: 20040401
  3. CO-DIOVAN [Concomitant]
  4. INSULIN [Concomitant]
  5. LEFLUNOMIDE [Concomitant]
  6. POLYSACCHARIDE-K [Concomitant]
  7. METOPROLOL SUCCINATE [Concomitant]
  8. MULTIVITAMIN [Concomitant]
  9. INSULIN LISPRO [Concomitant]

REACTIONS (5)
  - COUGH [None]
  - MUSCLE CRAMP [None]
  - NASAL CONGESTION [None]
  - SINUS POLYP [None]
  - SINUSITIS [None]
